FAERS Safety Report 21497270 (Version 3)
Quarter: 2022Q4

REPORT INFORMATION
  Report Type: Report from Study
  Country: US (occurrence: US)
  Receive Date: 20221023
  Receipt Date: 20221101
  Transmission Date: 20230113
  Serious: Yes (Hospitalization)
  Sender: FDA-Public Use
  Company Number: US-JNJFOC-20221026096

PATIENT
  Sex: Male
  Weight: 72.6 kg

DRUGS (2)
  1. APALUTAMIDE [Suspect]
     Active Substance: APALUTAMIDE
     Indication: Prostate cancer
     Dosage: TOTAL DOSE ADMINISTERED FROM 18-AUG-2022 TO 28-SEP-2022 14760 MG; MOST RECENT DOSE 27-SEP-2022
     Route: 048
     Dates: start: 20220818, end: 20220928
  2. LEUPROLIDE ACETATE [Suspect]
     Active Substance: LEUPROLIDE ACETATE
     Indication: Hormone therapy
     Dosage: LAST DOSE ADMINISTERED 02-JUN-2022; DUE TO RECEIVE 4 MONTH DOSE ON 06-OCT-2022
     Route: 065
     Dates: start: 202206, end: 20220602

REACTIONS (2)
  - Colitis [Recovering/Resolving]
  - Hypertension [Recovering/Resolving]

NARRATIVE: CASE EVENT DATE: 20220928
